FAERS Safety Report 6421788-4 (Version None)
Quarter: 2009Q4

REPORT INFORMATION
  Report Type: 
  Country: None (occurrence: None)
  Receive Date: 20091030
  Receipt Date: 20091026
  Transmission Date: 20100525
  Serious: Yes (Hospitalization)
  Sender: FDA-Public Use
  Company Number: A0813410A

PATIENT
  Age: 63 Year
  Sex: Female

DRUGS (7)
  1. TYKERB [Suspect]
     Indication: BREAST CANCER
     Dosage: 5TAB PER DAY
     Route: 048
     Dates: start: 20091003
  2. ZANTAC [Suspect]
     Indication: BREAST CANCER
     Route: 042
  3. BENADRYL [Suspect]
     Route: 042
  4. HERCEPTIN [Suspect]
  5. XELODA [Concomitant]
  6. LEVOTHYROXINE SODIUM [Concomitant]
  7. METOPROLOL [Concomitant]

REACTIONS (10)
  - ARRHYTHMIA [None]
  - DERMATITIS [None]
  - DIARRHOEA [None]
  - ERYTHEMA [None]
  - FEELING HOT [None]
  - MALAISE [None]
  - PRURITUS [None]
  - RASH [None]
  - TACHYCARDIA [None]
  - VOMITING [None]
